FAERS Safety Report 4947355-7 (Version None)
Quarter: 2006Q1

REPORT INFORMATION
  Report Type: 
  Country: None (occurrence: None)
  Receive Date: 20060317
  Receipt Date: 20051024
  Transmission Date: 20060701
  Serious: Yes (Hospitalization, Other)
  Sender: FDA-Public Use
  Company Number: US-MERCK-0511ISR00011

PATIENT
  Age: 52 Year
  Sex: Male
  Weight: 79 kg

DRUGS (7)
  1. VIOXX [Suspect]
     Indication: BACK PAIN
     Route: 048
  2. VIOXX [Suspect]
     Indication: PAIN IN EXTREMITY
     Route: 048
  3. GABAPENTIN [Concomitant]
     Route: 065
  4. ETODOLAC [Concomitant]
     Route: 065
  5. METHADONE HYDROCHLORIDE [Concomitant]
     Route: 065
  6. DIAZEPAM [Concomitant]
     Route: 065
  7. CLONAZEPAM [Concomitant]
     Route: 065

REACTIONS (11)
  - AMNESIA [None]
  - ANXIETY [None]
  - ARRHYTHMIA [None]
  - CARDIAC FAILURE [None]
  - DEPRESSION [None]
  - MITRAL VALVE REPLACEMENT [None]
  - MYOCARDIAL INFARCTION [None]
  - OVERDOSE [None]
  - PERICARDITIS [None]
  - PLEURAL DISORDER [None]
  - TRICUSPID VALVE INCOMPETENCE [None]
